FAERS Safety Report 5081773-4 (Version None)
Quarter: 2006Q3

REPORT INFORMATION
  Report Type: 
  Country: None (occurrence: None)
  Receive Date: 20060816
  Receipt Date: 20060502
  Transmission Date: 20061208
  Serious: Yes (Life-Threatening, Hospitalization, Other)
  Sender: FDA-Public Use
  Company Number: US-GLAXOSMITHKLINE-A0604225A

PATIENT
  Age: 59 Year
  Sex: Female
  Weight: 65.5 kg

DRUGS (5)
  1. IMITREX [Suspect]
     Indication: MIGRAINE
     Dosage: 100MG UNKNOWN
     Route: 048
     Dates: start: 20000101, end: 20060101
  2. ANTIHYPERTENSIVE [Concomitant]
  3. SYNTHROID [Concomitant]
     Dosage: .1MG PER DAY
  4. ZOCOR [Concomitant]
     Dosage: 40MG PER DAY
  5. ACCUPRIL [Concomitant]

REACTIONS (14)
  - ACUTE CORONARY SYNDROME [None]
  - ACUTE MYOCARDIAL INFARCTION [None]
  - BLOOD CREATINE PHOSPHOKINASE MB INCREASED [None]
  - BUNDLE BRANCH BLOCK [None]
  - CHEST PAIN [None]
  - CORONARY ARTERY DISEASE [None]
  - DILATATION VENTRICULAR [None]
  - DYSPNOEA [None]
  - HEADACHE [None]
  - HYPERHIDROSIS [None]
  - MYOCARDIAL INFARCTION [None]
  - NODAL RHYTHM [None]
  - TROPONIN I INCREASED [None]
  - VENTRICULAR HYPOKINESIA [None]
